FAERS Safety Report 8083083-X (Version None)
Quarter: 2012Q1

REPORT INFORMATION
  Report Type: 
  Country: None (occurrence: None)
  Receive Date: 20120127
  Receipt Date: 20110228
  Transmission Date: 20120608
  Serious: No
  Sender: FDA-Public Use
  Company Number: US-ABBOTT-11P-163-0708821-00

PATIENT
  Age: 35 Year
  Sex: Female
  Weight: 81.72 kg

DRUGS (1)
  1. HUMIRA [Suspect]
     Indication: RHEUMATOID ARTHRITIS
     Dates: start: 20101101

REACTIONS (7)
  - MIGRAINE [None]
  - RESPIRATORY TRACT CONGESTION [None]
  - DYSPNOEA [None]
  - INFLUENZA LIKE ILLNESS [None]
  - COUGH [None]
  - PYREXIA [None]
  - NASAL CONGESTION [None]
